FAERS Safety Report 6139893-9 (Version None)
Quarter: 2009Q2

REPORT INFORMATION
  Report Type: 
  Country: None (occurrence: None)
  Receive Date: 20090401
  Receipt Date: 20090325
  Transmission Date: 20091009
  Serious: Yes (Hospitalization)
  Sender: FDA-Public Use
  Company Number: ES-PURDUE-GBR_2009_0004788

PATIENT
  Age: 47 Year
  Sex: Female

DRUGS (6)
  1. SEVREDOL TABLETS 20 MG [Suspect]
     Indication: DRUG USE FOR UNKNOWN INDICATION
     Dosage: 20 MG, UNK
     Route: 065
     Dates: start: 20080101
  2. ERLOTINIB [Suspect]
     Indication: LUNG ADENOCARCINOMA
     Dosage: 150 MG, UNK
     Route: 065
     Dates: start: 20080101, end: 20081021
  3. LORMETAZEPAM [Suspect]
     Indication: DRUG USE FOR UNKNOWN INDICATION
     Route: 065
     Dates: start: 20080101
  4. TRANXILIUM [Suspect]
     Indication: DRUG USE FOR UNKNOWN INDICATION
     Route: 065
     Dates: start: 20080101
  5. PARACETAMOL [Concomitant]
     Indication: DRUG USE FOR UNKNOWN INDICATION
     Route: 065
  6. OMEPRAZOL                          /00661201/ [Concomitant]
     Indication: DRUG USE FOR UNKNOWN INDICATION
     Dosage: UNK, UNK
     Route: 065

REACTIONS (5)
  - ALOPECIA [None]
  - CONVULSION [None]
  - HOT FLUSH [None]
  - LOSS OF CONSCIOUSNESS [None]
  - TOXIC SKIN ERUPTION [None]
